FAERS Safety Report 5919950-X (Version None)
Quarter: 2008Q3

REPORT INFORMATION
  Report Type: 
  Country: None (occurrence: None)
  Receive Date: 20080909
  Receipt Date: 20070726
  Transmission Date: 20090109
  Serious: Yes (Hospitalization)
  Sender: FDA-Public Use
  Company Number: 163-20785-07070250

PATIENT
  Age: 53 Year
  Sex: Female
  Weight: 117.4 kg

DRUGS (8)
  1. THALOMID [Suspect]
     Indication: UTERINE CANCER
     Dosage: 400 MG, QHS, ORAL ; 200-600MG, QHS, ORAL
     Route: 048
     Dates: start: 20060510, end: 20070601
  2. THALOMID [Suspect]
     Indication: UTERINE CANCER
     Dosage: 400 MG, QHS, ORAL ; 200-600MG, QHS, ORAL
     Route: 048
     Dates: start: 20070621, end: 20070627
  3. INSULIN (INSULIN) [Concomitant]
  4. MAXZIDE [Concomitant]
  5. ATENOLOL [Concomitant]
  6. COLACE (DOCUSATE SODIUM) [Concomitant]
  7. OXYCODONE HCL [Concomitant]
  8. OXYCONTIN [Concomitant]

REACTIONS (4)
  - DEEP VEIN THROMBOSIS [None]
  - EMBOLISM [None]
  - HYPERCALCAEMIA [None]
  - PULMONARY EMBOLISM [None]
